FAERS Safety Report 7211614-8 (Version None)
Quarter: 2010Q4

REPORT INFORMATION
  Report Type: 
  Country: None (occurrence: None)
  Receive Date: 20101223
  Receipt Date: 20101215
  Transmission Date: 20110411
  Serious: Yes (Death)
  Sender: FDA-Public Use
  Company Number: 2010MA005376

PATIENT
  Age: 33 Year
  Sex: Female

DRUGS (4)
  1. VENLAFAXINE HYDROCHLORIDE [Suspect]
     Indication: DEPRESSION
     Dosage: 225 MG; QD; PO
     Route: 048
     Dates: start: 20050101, end: 20090507
  2. CLOZAPINE [Suspect]
     Indication: SCHIZOPHRENIA
     Dosage: 650 MG; QD; PO
     Route: 048
     Dates: start: 20050101, end: 20090507
  3. VALPROATE SODIUM [Suspect]
     Dosage: 300 MG; BID; PO
     Route: 048
     Dates: start: 20090101, end: 20090507
  4. CARBAMAZEPINE [Concomitant]

REACTIONS (5)
  - CYANOSIS [None]
  - EPILEPSY [None]
  - FALL [None]
  - SUDDEN DEATH [None]
  - VOMITING [None]
